FAERS Safety Report 9214105 (Version 5)
Quarter: 2014Q3

REPORT INFORMATION
  Report Type: Spontaneous
  Country: FR (occurrence: FR)
  Receive Date: 20130405
  Receipt Date: 20140801
  Transmission Date: 20150326
  Serious: Yes (Death, Hospitalization, Other)
  Sender: FDA-Public Use
  Company Number: FR-PFIZER INC-2013102906

PATIENT
  Age: 2 Year
  Sex: Female
  Weight: 14.5 kg

DRUGS (3)
  1. DOLIPRANE [Suspect]
     Active Substance: ACETAMINOPHEN
     Indication: PYREXIA
     Dosage: UNK
     Dates: start: 20130220, end: 20130222
  2. CHILDRENS ADVIL [Suspect]
     Active Substance: IBUPROFEN
     Indication: PAIN
     Dosage: UNK
     Dates: start: 20130220, end: 20130222
  3. CHILDRENS ADVIL [Suspect]
     Active Substance: IBUPROFEN
     Indication: PYREXIA

REACTIONS (9)
  - Infection [Fatal]
  - Streptococcal sepsis [Fatal]
  - Hepatocellular injury [Fatal]
  - Cardiomyopathy [Fatal]
  - Vomiting [Fatal]
  - Loss of consciousness [Fatal]
  - Septic shock [Fatal]
  - Renal failure [Fatal]
  - Thrombocytopenia [Fatal]

NARRATIVE: CASE EVENT DATE: 20130222
